FAERS Safety Report 6188145-X (Version None)
Quarter: 2009Q2

REPORT INFORMATION
  Report Type: 
  Country: None (occurrence: None)
  Receive Date: 20090513
  Receipt Date: 20080625
  Transmission Date: 20091009
  Serious: No
  Sender: FDA-Public Use
  Company Number: A0734951A

PATIENT
  Sex: Female

DRUGS (2)
  1. DYNACIRC CR [Suspect]
     Indication: HYPERTENSION
     Route: 048
  2. METFORMIN HCL [Suspect]

REACTIONS (4)
  - COLD SWEAT [None]
  - HYPOTENSION [None]
  - INFLUENZA LIKE ILLNESS [None]
  - PAIN [None]
